FAERS Safety Report 11412392 (Version 2)
Quarter: 2015Q3

REPORT INFORMATION
  Report Type: Spontaneous
  Country: US (occurrence: US)
  Receive Date: 20150824
  Receipt Date: 20150915
  Transmission Date: 20151125
  Serious: No
  Sender: FDA-Public Use
  Company Number: US-JNJFOC-20140511510

PATIENT
  Age: 32 Year
  Sex: Male
  Weight: 95.26 kg

DRUGS (2)
  1. MENS ROGAINE EXTRA STRENGTH [Suspect]
     Active Substance: MINOXIDIL
     Indication: ALOPECIA
     Dosage: ONE ML; MORNING AND AT NIGHT
     Route: 061
     Dates: start: 2010, end: 201211
  2. MENS ROGAINE EXTRA STRENGTH [Suspect]
     Active Substance: MINOXIDIL
     Indication: HAIR GROWTH ABNORMAL
     Dosage: ONE ML; MORNING AND AT NIGHT
     Route: 061
     Dates: start: 2010, end: 201211

REACTIONS (6)
  - Alopecia [Not Recovered/Not Resolved]
  - Hair disorder [Not Recovered/Not Resolved]
  - Drug ineffective for unapproved indication [Unknown]
  - Varicose vein [Unknown]
  - Eyelid disorder [Not Recovered/Not Resolved]
  - Product use issue [Unknown]
